FAERS Safety Report 5760303-5 (Version None)
Quarter: 2008Q2

REPORT INFORMATION
  Report Type: 
  Country: None (occurrence: None)
  Receive Date: 20080605
  Receipt Date: 20080530
  Transmission Date: 20081010
  Serious: Yes (Other)
  Sender: FDA-Public Use
  Company Number: DE-ALLERGAN-0806545US

PATIENT
  Age: 8 Year
  Sex: Male

DRUGS (1)
  1. BOTOX [Suspect]
     Indication: OSTEOCHONDROSIS
     Dosage: UNK, UNK
     Dates: start: 20080527, end: 20080527

REACTIONS (3)
  - EYELID OEDEMA [None]
  - HEREDITARY ANGIOEDEMA [None]
  - PRURITUS [None]
